FAERS Safety Report 8401879-9 (Version None)
Quarter: 2012Q2

REPORT INFORMATION
  Report Type: 
  Country: None (occurrence: None)
  Receive Date: 20120601
  Receipt Date: 20120412
  Transmission Date: 20120825
  Serious: No
  Sender: FDA-Public Use
  Company Number: US-ABBOTT-12P-163-0926873-00

PATIENT

DRUGS (2)
  1. MARINOL [Suspect]
     Indication: PAIN
  2. MARINOL [Suspect]
     Indication: NAUSEA

REACTIONS (2)
  - OFF LABEL USE [None]
  - DRUG DEPENDENCE [None]
